FAERS Safety Report 4502404-5 (Version None)
Quarter: 2004Q4

REPORT INFORMATION
  Report Type: 
  Country: None (occurrence: None)
  Receive Date: 20041110
  Receipt Date: 20041027
  Transmission Date: 20050328
  Serious: Yes (Hospitalization)
  Sender: FDA-Public Use
  Company Number: M2004.1639

PATIENT
  Age: 48 Year
  Sex: Male

DRUGS (3)
  1. RIFAMPIN [Suspect]
  2. PYRAZINAMIDE (PYRAZINAMIDE) UNK MANUFACTURER [Suspect]
     Indication: PULMONARY TUBERCULOSIS
  3. ISONIAZID [Concomitant]

REACTIONS (4)
  - ERYTHEMA [None]
  - GOUTY ARTHRITIS [None]
  - MUSCULOSKELETAL STIFFNESS [None]
  - SKIN DESQUAMATION [None]
